FAERS Safety Report 4603599-5 (Version None)
Quarter: 2005Q1

REPORT INFORMATION
  Report Type: 
  Country: None (occurrence: None)
  Receive Date: 20050308
  Receipt Date: 20050222
  Transmission Date: 20050727
  Serious: Yes (Disabling)
  Sender: FDA-Public Use
  Company Number: S05-AUS-00344-01

PATIENT
  Age: 61 Year
  Sex: Female
  Weight: 63 kg

DRUGS (4)
  1. CITALOPRAM HYDROBROMIDE [Suspect]
     Indication: AGITATION
     Dosage: 20 MG QD PO
     Route: 048
     Dates: start: 20050117
  2. EPILIM        (VALPROATE SODIUM) [Concomitant]
  3. CHLORPROMAZINE HCL [Concomitant]
  4. TOPAMAX [Concomitant]

REACTIONS (5)
  - ABNORMAL BEHAVIOUR [None]
  - FEELING ABNORMAL [None]
  - HEADACHE [None]
  - TREMOR [None]
  - VISION BLURRED [None]
